FAERS Safety Report 23395655 (Version 3)
Quarter: 2024Q1

REPORT INFORMATION
  Report Type: Spontaneous
  Country: LV (occurrence: LV)
  Receive Date: 20240112
  Receipt Date: 20240222
  Transmission Date: 20240409
  Serious: Yes (Life-Threatening, Hospitalization, Other)
  Sender: FDA-Public Use
  Company Number: LV-ASTELLAS-2024EU000233

PATIENT
  Age: 19 Year
  Sex: Female

DRUGS (9)
  1. TACROLIMUS [Suspect]
     Active Substance: TACROLIMUS
     Indication: Liver transplant
     Dosage: 3 MG, ONCE DAILY (STARTED BEFORE PREGNANCY)
     Route: 065
  2. TACROLIMUS [Suspect]
     Active Substance: TACROLIMUS
     Dosage: 3.5 MG, ONCE DAILY (FROM 27 WEEK 3 DAY)
     Route: 065
  3. TACROLIMUS [Suspect]
     Active Substance: TACROLIMUS
     Dosage: 2 MG, UNKNOWN FREQ. (POSTPARTUM PERIOD)
     Route: 065
  4. ZANTAC [Concomitant]
     Active Substance: RANITIDINE HYDROCHLORIDE
     Indication: Liver transplant
     Dosage: 50 MG, ONCE DAILY (STARTED BEFORE PREGNANCY)
     Route: 065
  5. URSODIOL [Concomitant]
     Active Substance: URSODIOL
     Indication: Autoimmune hepatitis
     Dosage: 500 MG, TWICE DAILY (STARTED BEFORE PREGNANCY)
     Route: 065
  6. CALCIUM\VITAMIN D [Concomitant]
     Active Substance: CALCIUM\VITAMIN D
     Indication: Product used for unknown indication
     Dosage: UNK UNK, UNKNOWN FREQ.
     Route: 065
  7. MEDROL [Concomitant]
     Active Substance: METHYLPREDNISOLONE
     Indication: Autoimmune hepatitis
     Dosage: 32 MG, ONCE DAILY FROM 27 WEEK 3 DAYS
     Route: 065
  8. MEDROL [Concomitant]
     Active Substance: METHYLPREDNISOLONE
     Dosage: 500 MG, ONCE DAILY FROM 27 WEEK 5 DAYS
     Route: 065
  9. MEDROL [Concomitant]
     Active Substance: METHYLPREDNISOLONE
     Dosage: 32 MG, ONCE DAILY IN POSTPARTUM PERIOD
     Route: 065

REACTIONS (2)
  - Hepatic encephalopathy [Recovering/Resolving]
  - Cytomegalovirus infection [Recovered/Resolved]
